FAERS Safety Report 10254313 (Version 3)
Quarter: 2014Q2

REPORT INFORMATION
  Report Type: Spontaneous
  Country: MA (occurrence: MA)
  Receive Date: 20140624
  Receipt Date: 20140630
  Transmission Date: 20141212
  Serious: Yes (Other)
  Sender: FDA-Public Use
  Company Number: MA-PFIZER INC-2014166887

PATIENT
  Sex: Female

DRUGS (3)
  1. LYRICA [Suspect]
     Indication: SCIATICA
     Dosage: 75 MG, 2X/DAY
     Dates: start: 2014, end: 2014
  2. LYRICA [Suspect]
     Indication: BACK PAIN
  3. CODOLIPRANE [Concomitant]
     Indication: SCIATICA
     Dosage: UNK

REACTIONS (1)
  - Thrombocytopenia [Recovered/Resolved]
